FAERS Safety Report 8496359-9 (Version None)
Quarter: 2012Q2

REPORT INFORMATION
  Report Type: 
  Country: None (occurrence: None)
  Receive Date: 20120405
  Receipt Date: 20091116
  Transmission Date: 20120825
  Serious: Yes (Disabling)
  Sender: FDA-Public Use
  Company Number: PHEH2009US12451

PATIENT
  Age: 52 Year
  Sex: Female
  Weight: 63.5 kg

DRUGS (1)
  1. RECLAST [Suspect]
     Indication: OSTEOPOROSIS
     Dosage: 5 MG, YEARLY, INTRAVENOUS
     Route: 036
     Dates: start: 20090610

REACTIONS (5)
  - INFLUENZA LIKE ILLNESS [None]
  - DYSPNOEA [None]
  - BONE PAIN [None]
  - CHEST PAIN [None]
  - FATIGUE [None]
